FAERS Safety Report 6508320-1 (Version None)
Quarter: 2009Q4

REPORT INFORMATION
  Report Type: 
  Country: None (occurrence: None)
  Receive Date: 20091221
  Receipt Date: 20090729
  Transmission Date: 20100525
  Serious: No
  Sender: FDA-Public Use
  Company Number: US-ASTRAZENECA-2004UW07589

PATIENT
  Age: 26101 Day
  Sex: Female
  Weight: 99.8 kg

DRUGS (4)
  1. CRESTOR [Suspect]
     Indication: BLOOD CHOLESTEROL INCREASED
     Route: 048
     Dates: start: 20040408
  2. BABY ASPIRIN [Concomitant]
  3. SINGULAIR [Concomitant]
  4. HYZAAR [Concomitant]

REACTIONS (2)
  - ALOPECIA [None]
  - PRURITUS [None]
